FAERS Safety Report 15632919 (Version 1)
Quarter: 2018Q4

REPORT INFORMATION
  Report Type: Spontaneous
  Country: US (occurrence: US)
  Receive Date: 20181116
  Receipt Date: 20181116
  Transmission Date: 20190205
  Serious: Yes (Disabling)
  Sender: FDA-Public Use
  Company Number: None

PATIENT
  Age: 61 Year
  Sex: Female
  Weight: 65.77 kg

DRUGS (1)
  1. CIPROFLOXACIN HCL 500MG TAB [Suspect]
     Active Substance: CIPROFLOXACIN
     Indication: URINARY TRACT INFECTION
     Dosage: ?          QUANTITY:14 PILLS;?
     Route: 048
     Dates: start: 20180824, end: 20180831

REACTIONS (11)
  - Headache [None]
  - Insomnia [None]
  - Pain in jaw [None]
  - Dizziness [None]
  - Paraesthesia [None]
  - Neuropathy peripheral [None]
  - Vision blurred [None]
  - Tendon pain [None]
  - Arthralgia [None]
  - Tinnitus [None]
  - Joint swelling [None]

NARRATIVE: CASE EVENT DATE: 20180824
